FAERS Safety Report 6218121-X (Version None)
Quarter: 2009Q2

REPORT INFORMATION
  Report Type: 
  Country: None (occurrence: None)
  Receive Date: 20090608
  Receipt Date: 20090602
  Transmission Date: 20091009
  Serious: Yes (Death, Disabling)
  Sender: FDA-Public Use
  Company Number: PHHY2009JP02503

PATIENT
  Age: 58 Year
  Sex: Male

DRUGS (9)
  1. SANDIMMUNE [Suspect]
     Indication: BONE MARROW TRANSPLANT
     Dosage: 150 MG/DAY
     Route: 042
     Dates: start: 20080408, end: 20080422
  2. SANDIMMUNE [Suspect]
     Dosage: 170 MG/DAY
     Route: 042
     Dates: start: 20080423, end: 20080526
  3. SANDIMMUNE [Suspect]
     Dosage: 150 MG, UNK
     Route: 042
     Dates: start: 20080527, end: 20080728
  4. NEORAL [Suspect]
     Indication: BONE MARROW TRANSPLANT
     Dosage: 220 MG/DAY
     Route: 048
     Dates: start: 20080729, end: 20080123
  5. METHOTREXATE [Concomitant]
     Indication: BONE MARROW TRANSPLANT
  6. METHOTREXATE [Concomitant]
     Indication: PROPHYLAXIS AGAINST GRAFT VERSUS HOST DISEASE
  7. FLUDARABINE PHOSPHATE [Concomitant]
     Indication: BONE MARROW TRANSPLANT
  8. BUSULFAN [Concomitant]
     Indication: BONE MARROW TRANSPLANT
  9. IRRADIATION [Concomitant]

REACTIONS (9)
  - BLOOD PRESSURE INCREASED [None]
  - CONVULSION [None]
  - DISORIENTATION [None]
  - ENCEPHALITIS HERPES [None]
  - HEADACHE [None]
  - HUMAN HERPESVIRUS 6 INFECTION [None]
  - LUNG INFECTION PSEUDOMONAL [None]
  - PYREXIA [None]
  - REVERSIBLE POSTERIOR LEUKOENCEPHALOPATHY SYNDROME [None]
